FAERS Safety Report 4989706-3 (Version None)
Quarter: 2006Q2

REPORT INFORMATION
  Report Type: 
  Country: None (occurrence: None)
  Receive Date: 20060501
  Receipt Date: 20060414
  Transmission Date: 20061013
  Serious: Yes (Other)
  Sender: FDA-Public Use
  Company Number: 007178

PATIENT
  Age: 39 Year
  Sex: Female
  Weight: 46.7 kg

DRUGS (2)
  1. MEFLOQUINE HYDROCHLORIDE (MEFLOQUINE HYDROCHLORIDE) TABLET, 250MG [Suspect]
     Indication: MALARIA PROPHYLAXIS
     Dosage: 1 TABLET, WEEKLY, ORAL
     Route: 048
     Dates: start: 20060311, end: 20060408
  2. PRENATAL VITAMINS (ASCORBIC ACID, VITAMIN D NOS, MINERALS NOS, VITAMIN [Concomitant]

REACTIONS (6)
  - ANOREXIA [None]
  - ANXIETY [None]
  - CONFUSIONAL STATE [None]
  - DISTURBANCE IN ATTENTION [None]
  - HEART RATE INCREASED [None]
  - SUICIDAL IDEATION [None]
